FAERS Safety Report 5389641-5 (Version None)
Quarter: 2007Q3

REPORT INFORMATION
  Report Type: 
  Country: None (occurrence: None)
  Receive Date: 20070717
  Receipt Date: 20070710
  Transmission Date: 20080115
  Serious: Yes (Other)
  Sender: FDA-Public Use
  Company Number: US-GENENTECH-244410

PATIENT
  Sex: Female

DRUGS (2)
  1. XOLAIR [Suspect]
     Indication: ASTHMA
     Dosage: 300 UNK, Q2W
  2. XOLAIR [Suspect]
     Indication: HYPERSENSITIVITY

REACTIONS (2)
  - FUNGAL INFECTION [None]
  - LIP SWELLING [None]
